FAERS Safety Report 4998655-6 (Version None)
Quarter: 2006Q2

REPORT INFORMATION
  Report Type: 
  Country: None (occurrence: None)
  Receive Date: 20060509
  Receipt Date: 20060503
  Transmission Date: 20061013
  Serious: Yes (Hospitalization)
  Sender: FDA-Public Use
  Company Number: GXKR2006IT01998

PATIENT
  Age: 45 Year
  Sex: Female
  Weight: 67 kg

DRUGS (1)
  1. TICLOPIDINE HCL [Suspect]
     Indication: ATRIAL FIBRILLATION
     Dosage: 250 MG, QD, ORAL
     Route: 048
     Dates: start: 19930401, end: 19960901

REACTIONS (5)
  - CHOLESTASIS [None]
  - HAEMATOTOXICITY [None]
  - HEPATOTOXICITY [None]
  - RENAL FAILURE ACUTE [None]
  - THROMBOCYTOPENIA [None]
